FAERS Safety Report 20659173 (Version 1)
Quarter: 2022Q1

REPORT INFORMATION
  Report Type: Spontaneous
  Country: US (occurrence: US)
  Receive Date: 20220331
  Receipt Date: 20220331
  Transmission Date: 20220423
  Serious: No
  Sender: FDA-Public Use
  Company Number: US-SANOFI-01033746

PATIENT
  Sex: Female

DRUGS (1)
  1. LANTUS SOLOSTAR [Suspect]
     Active Substance: INSULIN GLARGINE
     Indication: Type 2 diabetes mellitus
     Dosage: 60 UNITS AM 26 UNITS PM DRUG INTERVAL DOSAGE : 2 TIME A DAY DRUG TREATMENT DURATION:

REACTIONS (1)
  - Inappropriate schedule of product administration [Unknown]
